FAERS Safety Report 10038686 (Version 4)
Quarter: 2015Q1

REPORT INFORMATION
  Report Type: Report from Study
  Country: BR (occurrence: BR)
  Receive Date: 20140326
  Receipt Date: 20150127
  Transmission Date: 20150720
  Serious: Yes (Hospitalization, Other)
  Sender: FDA-Public Use
  Company Number: BR-ABBVIE-14P-020-1214292-00

PATIENT
  Age: 54 Year
  Sex: Male
  Weight: 95 kg

DRUGS (10)
  1. METAST [Concomitant]
     Indication: PRODUCT USED FOR UNKNOWN INDICATION
  2. VELIJA [Concomitant]
     Active Substance: DULOXETINE HYDROCHLORIDE
     Indication: ANXIETY
     Route: 048
     Dates: start: 20141223
  3. HUMIRA [Suspect]
     Active Substance: ADALIMUMAB
     Indication: PSORIATIC ARTHROPATHY
     Route: 058
     Dates: end: 20131115
  4. HUMIRA [Suspect]
     Active Substance: ADALIMUMAB
     Route: 058
     Dates: start: 20141228
  5. MIRTAX [Concomitant]
     Indication: MUSCLE RELAXANT THERAPY
     Dosage: AT NIGHT
     Route: 048
  6. DIOVAN AMLO [Concomitant]
     Active Substance: AMLODIPINE\VALSARTAN
     Indication: BLOOD PRESSURE MANAGEMENT
     Dosage: 160MG + 5 MG
     Route: 048
  7. AMLODIPINE [Concomitant]
     Active Substance: AMLODIPINE BESYLATE
     Indication: BLOOD PRESSURE MANAGEMENT
  8. TECNOMET [Concomitant]
     Active Substance: METHOTREXATE
     Indication: PSORIATIC ARTHROPATHY
     Route: 048
     Dates: start: 20141229
  9. FOLIC ACID. [Concomitant]
     Active Substance: FOLIC ACID
     Indication: PROPHYLAXIS
     Dosage: 2 TABLETS IN DAY AFTER HUMIRA INJECTION, 1 TABLET PER
     Route: 048
     Dates: start: 20141229
  10. OMEPRAZOLE. [Concomitant]
     Active Substance: OMEPRAZOLE
     Indication: GASTRIC DISORDER
     Route: 048
     Dates: start: 20141223

REACTIONS (8)
  - Drug-induced liver injury [Recovered/Resolved]
  - Psoriatic arthropathy [Recovering/Resolving]
  - Pain [Recovered/Resolved]
  - Arrhythmia [Recovered/Resolved]
  - Hand deformity [Recovering/Resolving]
  - Abdominal pain [Recovered/Resolved]
  - Peripheral swelling [Recovering/Resolving]
  - Anxiety [Unknown]

NARRATIVE: CASE EVENT DATE: 201312
